FAERS Safety Report 4753446-6 (Version None)
Quarter: 2005Q3

REPORT INFORMATION
  Report Type: 
  Country: None (occurrence: None)
  Receive Date: 20050824
  Receipt Date: 20050808
  Transmission Date: 20060218
  Serious: Yes (Other)
  Sender: FDA-Public Use
  Company Number: 2005-131247-NL

PATIENT
  Age: 27 Year
  Sex: Female
  Weight: 61.2 kg

DRUGS (1)
  1. NUVARING [Suspect]
     Indication: CONTRACEPTION
     Dosage: VAGINAL
     Route: 067
     Dates: start: 20050114, end: 20050204

REACTIONS (10)
  - ACARODERMATITIS [None]
  - BACK PAIN [None]
  - ERYTHEMA NODOSUM [None]
  - INFLUENZA [None]
  - LYME DISEASE [None]
  - LYMPHADENOPATHY [None]
  - RASH [None]
  - URTICARIA [None]
  - VIRAL INFECTION [None]
  - WHITE BLOOD CELL COUNT INCREASED [None]
